FAERS Safety Report 7513399-4 (Version None)
Quarter: 2011Q2

REPORT INFORMATION
  Report Type: 
  Country: None (occurrence: None)
  Receive Date: 20110531
  Receipt Date: 20110525
  Transmission Date: 20111010
  Serious: Yes (Hospitalization, Other)
  Sender: FDA-Public Use
  Company Number: FR-PFIZER INC-2011112424

PATIENT
  Age: 44 Year
  Sex: Female

DRUGS (6)
  1. ATORVASTATIN [Suspect]
     Dosage: 40 MG, 1X/DAY
     Route: 048
     Dates: start: 20110101
  2. METFORMINE PFIZER [Suspect]
     Dosage: UNK
     Route: 048
     Dates: end: 20110216
  3. EXFORGE [Suspect]
     Dosage: [AMLODIPINE 5 MG/ VALSARTAN 160 MG], DAILY
     Route: 048
     Dates: end: 20110216
  4. NIZORAL [Suspect]
     Dosage: UNK
     Route: 048
     Dates: start: 20090601, end: 20110216
  5. GLICLAZIDE [Suspect]
     Dosage: UNK
     Route: 048
     Dates: end: 20110216
  6. JANUVIA [Suspect]
     Dosage: 100 MG, 1X/DAY
     Route: 048
     Dates: start: 20110101, end: 20110210

REACTIONS (2)
  - INTERSTITIAL LUNG DISEASE [None]
  - CEREBROVASCULAR ACCIDENT [None]
